FAERS Safety Report 22270532 (Version 3)
Quarter: 2023Q2

REPORT INFORMATION
  Report Type: Report from Study
  Country: US (occurrence: US)
  Receive Date: 20230501
  Receipt Date: 20230522
  Transmission Date: 20230721
  Serious: Yes (Life-Threatening, Hospitalization)
  Sender: FDA-Public Use
  Company Number: US-DSJP-DSU-2023-104968

PATIENT
  Age: 61 Year
  Sex: Male
  Weight: 62.7 kg

DRUGS (19)
  1. FAM-TRASTUZUMAB DERUXTECAN-NXKI [Suspect]
     Active Substance: FAM-TRASTUZUMAB DERUXTECAN-NXKI
     Indication: Neoplasm
     Dosage: 5.4 MG/KG, ONCE EVERY 3 WK (D1)
     Route: 042
     Dates: start: 20221214, end: 20221214
  2. FAM-TRASTUZUMAB DERUXTECAN-NXKI [Suspect]
     Active Substance: FAM-TRASTUZUMAB DERUXTECAN-NXKI
     Indication: Cholangiocarcinoma
     Dosage: 5.5 MG/KG, D1 ONCE EVERY 3 WK
     Route: 042
     Dates: start: 20221214, end: 20221223
  3. FAM-TRASTUZUMAB DERUXTECAN-NXKI [Suspect]
     Active Substance: FAM-TRASTUZUMAB DERUXTECAN-NXKI
     Dosage: 4.4 MG/KG, ONCE EVERY 3 WK
     Route: 042
     Dates: start: 20230105
  4. CERALASERTIB [Suspect]
     Active Substance: CERALASERTIB
     Indication: Neoplasm
     Dosage: 2240 MG, BID D1-7
     Route: 048
     Dates: start: 20221214, end: 20221221
  5. CERALASERTIB [Suspect]
     Active Substance: CERALASERTIB
     Indication: Cholangiocarcinoma
     Dosage: 160 MG, BID D1-7
     Route: 048
     Dates: start: 20221214, end: 20221223
  6. CERALASERTIB [Suspect]
     Active Substance: CERALASERTIB
     Dosage: 120 MG, BID D1-7
     Route: 048
     Dates: start: 20230105
  7. LANTUS [Concomitant]
     Active Substance: INSULIN GLARGINE
     Indication: Diabetes mellitus
     Dosage: 10 IU, QD
     Route: 058
  8. NOVOLOG [Concomitant]
     Active Substance: INSULIN ASPART
     Indication: Diabetes mellitus
     Dosage: 8 IU, BID
     Route: 058
  9. LASIX [Concomitant]
     Active Substance: FUROSEMIDE
     Indication: Fluid retention
     Dosage: 20 MG, DAILY AS NEEDED
     Route: 048
  10. LASIX [Concomitant]
     Active Substance: FUROSEMIDE
     Indication: Swelling
  11. PROTONIX [Concomitant]
     Active Substance: PANTOPRAZOLE SODIUM
     Indication: Product used for unknown indication
     Dosage: 40 MG, BID
     Route: 048
  12. K DUR [Concomitant]
     Indication: Product used for unknown indication
     Dosage: 20 MEQ, QD
     Route: 048
  13. LACTINEX [LACTOBACILLUS ACIDOPHILUS;LACTOBACILLUS BULGARICUS] [Concomitant]
     Indication: Product used for unknown indication
     Dosage: 2 DF, TID
     Route: 048
  14. CARAFATE [Concomitant]
     Active Substance: SUCRALFATE
     Indication: Product used for unknown indication
     Dosage: 1000 MG, ONCE EVERY 6HR
     Route: 048
  15. LIPITOR [Concomitant]
     Active Substance: ATORVASTATIN CALCIUM
     Indication: Product used for unknown indication
     Dosage: 20 MG, QD
     Route: 048
  16. TOPROL XL [Concomitant]
     Active Substance: METOPROLOL SUCCINATE
     Indication: Product used for unknown indication
     Dosage: 25 MG, QD
     Route: 048
  17. PROGRAF [Concomitant]
     Active Substance: TACROLIMUS
     Indication: Renal transplant
     Dosage: 1.5 MG, BID
     Route: 048
  18. AMBIEN [Concomitant]
     Active Substance: ZOLPIDEM TARTRATE
     Indication: Insomnia
     Dosage: 5 MG, HS AS NEEDED
     Route: 048
  19. DECADRON [Concomitant]
     Active Substance: DEXAMETHASONE
     Indication: Product used for unknown indication
     Dosage: 4 MG, Q48
     Route: 048

REACTIONS (6)
  - Lymphocyte count decreased [Recovered/Resolved]
  - Thrombocytopenia [Recovered/Resolved]
  - Neutrophil count decreased [Recovered/Resolved]
  - Febrile neutropenia [Recovered/Resolved]
  - Lymphocyte count decreased [Recovered/Resolved]
  - Sepsis [Recovered/Resolved]

NARRATIVE: CASE EVENT DATE: 20221223
